FAERS Safety Report 21099349 (Version 4)
Quarter: 2022Q3

REPORT INFORMATION
  Report Type: Report from Study
  Country: GB (occurrence: None)
  Receive Date: 20220719
  Receipt Date: 20220803
  Transmission Date: 20221027
  Serious: Yes (Hospitalization)
  Sender: FDA-Public Use
  Company Number: GB-Eisai Medical Research-EC-2022-119336

PATIENT
  Age: 78 Year
  Sex: Male
  Weight: 96.9 kg

DRUGS (17)
  1. LENVATINIB [Suspect]
     Active Substance: LENVATINIB
     Indication: Oesophageal cancer metastatic
     Route: 048
     Dates: start: 20220429, end: 20220710
  2. PEMBROLIZUMAB [Suspect]
     Active Substance: PEMBROLIZUMAB
     Indication: Oesophageal cancer metastatic
     Route: 041
     Dates: start: 20220429, end: 20220701
  3. CISPLATIN [Suspect]
     Active Substance: CISPLATIN
     Indication: Oesophageal cancer metastatic
     Dosage: UNKNOWN DOSE
     Route: 042
     Dates: start: 20220429, end: 20220701
  4. FLUOROURACIL [Suspect]
     Active Substance: FLUOROURACIL
     Indication: Oesophageal cancer metastatic
     Dosage: UNKNOWN DOSE
     Route: 042
     Dates: start: 20220429, end: 20220705
  5. EDOXABAN [Concomitant]
     Active Substance: EDOXABAN
     Dates: start: 20211114
  6. BISOPROLOL [Concomitant]
     Active Substance: BISOPROLOL
     Dates: start: 20211114
  7. FUROSEMIDE [Concomitant]
     Active Substance: FUROSEMIDE
     Dates: start: 20211114
  8. COSMOCOL [Concomitant]
     Dates: start: 20220503
  9. METOCLOPRAMIDE [Concomitant]
     Active Substance: METOCLOPRAMIDE
     Dates: start: 20220502
  10. FILGRASTIM [Concomitant]
     Active Substance: FILGRASTIM
     Route: 058
     Dates: start: 20220527
  11. NYSTATIN [Concomitant]
     Active Substance: NYSTATIN
     Dates: start: 20220623, end: 20220630
  12. FLUCONAZOLE [Concomitant]
     Active Substance: FLUCONAZOLE
     Dates: start: 20220608
  13. CARBOCYSTEINE [Concomitant]
     Active Substance: CARBOCYSTEINE
     Dates: start: 20220623
  14. BENZYDAMINE HYDROCHLORIDE [Concomitant]
     Active Substance: BENZYDAMINE HYDROCHLORIDE
     Dates: start: 20220623
  15. ACETAMINOPHEN [Concomitant]
     Active Substance: ACETAMINOPHEN
     Dates: start: 20220610
  16. SODIUM CHLORIDE [Concomitant]
     Active Substance: SODIUM CHLORIDE
     Dates: start: 20220610
  17. LANSOPRAZOLE [Concomitant]
     Active Substance: LANSOPRAZOLE
     Dates: start: 20220613

REACTIONS (3)
  - Dysphagia [Recovered/Resolved with Sequelae]
  - Dehydration [Recovered/Resolved]
  - Orthostatic hypotension [Recovered/Resolved]

NARRATIVE: CASE EVENT DATE: 20220710
